FAERS Safety Report 15426956 (Version 1)
Quarter: 2018Q3

REPORT INFORMATION
  Report Type: Spontaneous
  Country: JP (occurrence: JP)
  Receive Date: 20180925
  Receipt Date: 20180925
  Transmission Date: 20181010
  Serious: Yes (Other)
  Sender: FDA-Public Use
  Company Number: JP-ALLERGAN-1846136US

PATIENT
  Age: 15 Year
  Sex: Female

DRUGS (3)
  1. LUNESTA [Concomitant]
     Active Substance: ESZOPICLONE
     Indication: ANXIETY DISORDER
     Route: 048
     Dates: start: 201806
  2. MEILAX [Concomitant]
     Active Substance: ETHYL LOFLAZEPATE
     Indication: ANXIETY DISORDER
     Dosage: 0.5 MG, QD
     Route: 048
     Dates: start: 201806
  3. ESCITALOPRAM OXALATE ? BP [Suspect]
     Active Substance: ESCITALOPRAM OXALATE
     Indication: ANXIETY DISORDER
     Dosage: 0.5 MG, QD
     Route: 048
     Dates: start: 20180601

REACTIONS (2)
  - Activation syndrome [Unknown]
  - Drug administered to patient of inappropriate age [Unknown]

NARRATIVE: CASE EVENT DATE: 201806
